FAERS Safety Report 5131036-3 (Version None)
Quarter: 2006Q4

REPORT INFORMATION
  Report Type: 
  Country: None (occurrence: None)
  Receive Date: 20061019
  Receipt Date: 20061017
  Transmission Date: 20070319
  Serious: Yes (Other)
  Sender: FDA-Public Use
  Company Number: GB-ROXANE LABORATORIES, INC-2006-BP-12124RO

PATIENT
  Age: 24 Year
  Sex: Male

DRUGS (2)
  1. CYCLOPHOSPHAMIDE [Suspect]
     Indication: CHEMOTHERAPY
  2. AML 10 PROTOCOL [Suspect]
     Indication: CHEMOTHERAPY

REACTIONS (1)
  - SALIVARY GLAND NEOPLASM [None]
